FAERS Safety Report 19194292 (Version 1)
Quarter: 2021Q2

REPORT INFORMATION
  Report Type: Spontaneous
  Country: US (occurrence: US)
  Receive Date: 20210429
  Receipt Date: 20210429
  Transmission Date: 20210717
  Serious: Yes (Life-Threatening, Hospitalization)
  Sender: FDA-Public Use
  Company Number: None

PATIENT
  Age: 76 Year
  Sex: Male
  Weight: 88 kg

DRUGS (1)
  1. APIXABAN [Suspect]
     Active Substance: APIXABAN
     Indication: ANTICOAGULANT THERAPY
     Route: 046
     Dates: start: 20200214, end: 20210331

REACTIONS (6)
  - Endocarditis [None]
  - Streptococcus test positive [None]
  - Bacteraemia [None]
  - Subarachnoid haemorrhage [None]
  - Mental status changes [None]
  - Hypotension [None]

NARRATIVE: CASE EVENT DATE: 20210331
